FAERS Safety Report 23310122 (Version 1)
Quarter: 2023Q4

REPORT INFORMATION
  Report Type: Spontaneous
  Country: IT (occurrence: IT)
  Receive Date: 20231218
  Receipt Date: 20231218
  Transmission Date: 20240109
  Serious: Yes (Death)
  Sender: FDA-Public Use
  Company Number: IT-CMP PHARMA-2023CMP00079

PATIENT
  Age: 56 Year
  Sex: Male
  Weight: 73 kg

DRUGS (5)
  1. AMLODIPINE [Suspect]
     Active Substance: AMLODIPINE BESYLATE
     Indication: Completed suicide
     Route: 048
  2. DOXAZOSIN [Suspect]
     Active Substance: DOXAZOSIN MESYLATE
     Indication: Completed suicide
     Route: 048
  3. DOXAZOSIN [Suspect]
     Active Substance: DOXAZOSIN MESYLATE
     Indication: Completed suicide
  4. CARVEDILOL [Suspect]
     Active Substance: CARVEDILOL
     Indication: Completed suicide
     Route: 048
  5. PHARMACOLOGICAL HYPERCHOLESTEROLEMIA TREATMENT [Concomitant]
     Indication: Hypercholesterolaemia

REACTIONS (2)
  - Completed suicide [Fatal]
  - Overdose [Fatal]
